FAERS Safety Report 24084170 (Version 2)
Quarter: 2025Q2

REPORT INFORMATION
  Report Type: Spontaneous
  Country: HR (occurrence: HR)
  Receive Date: 20240712
  Receipt Date: 20250519
  Transmission Date: 20250716
  Serious: Yes (Hospitalization, Other)
  Sender: TAKEDA
  Company Number: HR-TAKEDA-2024TUS070074

PATIENT
  Sex: Female

DRUGS (6)
  1. ENTYVIO [Suspect]
     Active Substance: VEDOLIZUMAB
     Indication: Colitis ulcerative
  2. ENTYVIO [Suspect]
     Active Substance: VEDOLIZUMAB
     Indication: Inflammatory bowel disease
  3. ENTYVIO [Suspect]
     Active Substance: VEDOLIZUMAB
     Indication: Colitis ulcerative
     Dosage: 108 MILLIGRAM, Q2WEEKS
  4. ENTYVIO [Suspect]
     Active Substance: VEDOLIZUMAB
     Indication: Inflammatory bowel disease
  5. ENTYVIO [Suspect]
     Active Substance: VEDOLIZUMAB
  6. ENTYVIO [Suspect]
     Active Substance: VEDOLIZUMAB

REACTIONS (5)
  - Pericardial effusion [Recovered/Resolved]
  - Haematochezia [Unknown]
  - Pleural effusion [Recovered/Resolved]
  - Drug hypersensitivity [Recovered/Resolved]
  - Injection site reaction [Recovered/Resolved]

NARRATIVE: CASE EVENT DATE: 20231201
